FAERS Safety Report 6633026-8 (Version None)
Quarter: 2010Q1

REPORT INFORMATION
  Report Type: 
  Country: None (occurrence: None)
  Receive Date: 20100310
  Receipt Date: 20100225
  Transmission Date: 20100710
  Serious: Yes (Other)
  Sender: FDA-Public Use
  Company Number: US-1181038

PATIENT
  Age: 72 Year
  Sex: Female

DRUGS (2)
  1. BSS [Suspect]
     Dosage: (INTRAOCULAR)
     Route: 031
     Dates: start: 20100222, end: 20100222
  2. DUOVISC [Concomitant]

REACTIONS (6)
  - CORNEAL DEPOSITS [None]
  - CORNEAL DISORDER [None]
  - CORNEAL OEDEMA [None]
  - DRUG TOXICITY [None]
  - ENDOPHTHALMITIS [None]
  - PAIN [None]
